FAERS Safety Report 22967384 (Version 3)
Quarter: 2023Q4

REPORT INFORMATION
  Report Type: Spontaneous
  Country: US (occurrence: US)
  Receive Date: 20230921
  Receipt Date: 20231006
  Transmission Date: 20240110
  Serious: No
  Sender: FDA-Public Use
  Company Number: US-PFIZER INC-PV202300156999

PATIENT
  Age: 81 Year
  Sex: Female

DRUGS (1)
  1. IBRANCE [Suspect]
     Active Substance: PALBOCICLIB
     Dosage: UNK
     Dates: end: 20230906

REACTIONS (5)
  - Alopecia [Unknown]
  - Platelet count decreased [Recovering/Resolving]
  - Oral herpes [Recovered/Resolved]
  - Stress [Unknown]
  - Eczema [Recovered/Resolved]
